FAERS Safety Report 6103051-4 (Version None)
Quarter: 2009Q1

REPORT INFORMATION
  Report Type: 
  Country: None (occurrence: None)
  Receive Date: 20090305
  Receipt Date: 20090225
  Transmission Date: 20090719
  Serious: Yes (Other)
  Sender: FDA-Public Use
  Company Number: US-ASTRAZENECA-2009UW03514

PATIENT
  Age: 772 Month
  Sex: Male
  Weight: 86.2 kg

DRUGS (2)
  1. CRESTOR [Suspect]
     Indication: HYPERCHOLESTEROLAEMIA
     Route: 048
     Dates: start: 20050801, end: 20070801
  2. CRESTOR [Suspect]
     Dosage: TWO ONCE A DAY
     Route: 048

REACTIONS (1)
  - ARTHRALGIA [None]
